FAERS Safety Report 24345270 (Version 2)
Quarter: 2024Q4

REPORT INFORMATION
  Report Type: Spontaneous
  Country: JP (occurrence: JP)
  Receive Date: 20240920
  Receipt Date: 20241011
  Transmission Date: 20250114
  Serious: Yes (Death)
  Sender: EISAI
  Company Number: JP-Eisai-EC-2024-174592

PATIENT
  Age: 50 Year
  Sex: Male
  Weight: 69 kg

DRUGS (3)
  1. LEMBOREXANT [Suspect]
     Active Substance: LEMBOREXANT
     Indication: Intentional overdose
     Dosage: 161 PIECES OF 5-MG TABLETS AND 225 PIECES OF 2.5 MG TABLETS (TOTALING 1367.5 MG)
     Route: 048
  2. QUETIAPINE [Concomitant]
     Active Substance: QUETIAPINE
     Indication: Product used for unknown indication
     Dosage: DOSE AND FREQUENCY UNKNOWN.
     Route: 065
  3. TRAZODONE [Concomitant]
     Active Substance: TRAZODONE HYDROCHLORIDE
     Indication: Product used for unknown indication
     Dosage: DOSE AND FREQUENCY UNKNOWN.
     Route: 065

REACTIONS (1)
  - Intentional overdose [Fatal]
